FAERS Safety Report 18237401 (Version 2)
Quarter: 2020Q4

REPORT INFORMATION
  Report Type: Report from Study
  Country: US (occurrence: US)
  Receive Date: 20200907
  Receipt Date: 20201130
  Transmission Date: 20210113
  Serious: Yes (Other)
  Sender: FDA-Public Use
  Company Number: US-BIOVITRUM-2020US4748

PATIENT
  Age: 16 Year
  Sex: Male

DRUGS (1)
  1. KINERET [Suspect]
     Active Substance: ANAKINRA
     Indication: PERICARDIAL DISEASE
     Route: 058
     Dates: start: 20200804

REACTIONS (5)
  - Chest pain [Unknown]
  - Injection site rash [Recovering/Resolving]
  - Off label use [Unknown]
  - COVID-19 [Unknown]
  - Injection site pain [Unknown]

NARRATIVE: CASE EVENT DATE: 202008
